FAERS Safety Report 10510249 (Version 2)
Quarter: 2014Q4

REPORT INFORMATION
  Report Type: Other
  Country: IT (occurrence: IT)
  Receive Date: 20141010
  Receipt Date: 20141110
  Transmission Date: 20150528
  Serious: Yes (Other)
  Sender: FDA-Public Use
  Company Number: IT-SUN PHARMACEUTICAL INDUSTRIES LTD-2014SUN02276

PATIENT

DRUGS (5)
  1. SOLDESAM (LABORATORIO FARMACOLOGICO MILANESE S.R.L.) (D07AB19) [Concomitant]
     Indication: PREMEDICATION
     Route: 042
     Dates: start: 20140703, end: 20140904
  2. ALOXI - 250 MCG SOLUZIONE INIETTABILE USO ENDOVENOSO 5 ML FLACONCINO V [Concomitant]
     Indication: PREMEDICATION
     Dosage: 250 UG
     Route: 042
     Dates: start: 20140703, end: 20140904
  3. RANIDIL - ^50 MG/5 ML SOLUZIONE INIETTABILE PER USO ENDOVENOSO^ 10 FIA [Concomitant]
     Indication: PREMEDICATION
     Dosage: 50 MG
     Route: 042
     Dates: start: 20140703, end: 20140904
  4. GEMCITABINA CLORIDRATO (L) [Concomitant]
     Indication: OVARIAN CANCER
     Dosage: 1200 MG
     Route: 042
     Dates: start: 20140703, end: 20140904
  5. CARBOPLATINO SUN 10 MG/ML CONCENTRATO PER SOLUZIONE PER INFUSIONE [Suspect]
     Active Substance: CARBOPLATIN
     Indication: OVARIAN CANCER
     Dosage: 512 MG CYCLICAL
     Route: 042
     Dates: start: 20140703, end: 20140724

REACTIONS (3)
  - Chest discomfort [Recovered/Resolved]
  - Dyspnoea [Recovered/Resolved]
  - Infusion related reaction [Recovered/Resolved]

NARRATIVE: CASE EVENT DATE: 20140724
